FAERS Safety Report 16060805 (Version 9)
Quarter: 2022Q3

REPORT INFORMATION
  Report Type: Spontaneous
  Country: GB (occurrence: GB)
  Receive Date: 20190312
  Receipt Date: 20220825
  Transmission Date: 20221026
  Serious: Yes (Other)
  Sender: FDA-Public Use
  Company Number: GB-AUROBINDO-AUR-APL-2019-011959

PATIENT
  Sex: Male

DRUGS (21)
  1. ESCITALOPRAM [Suspect]
     Active Substance: ESCITALOPRAM OXALATE
     Indication: Product used for unknown indication
     Dosage: 10 MILLIGRAM, ONCE A DAY, MORNING
     Route: 048
  2. OLANZAPINE [Suspect]
     Active Substance: OLANZAPINE
     Indication: Product used for unknown indication
     Dosage: 5 MILLIGRAM, ONCE A DAY
     Route: 048
  3. OLANZAPINE [Suspect]
     Active Substance: OLANZAPINE
     Dosage: 10 MILLIGRAM, ONCE A DAY
     Route: 048
  4. MIRTAZAPINE [Suspect]
     Active Substance: MIRTAZAPINE
     Indication: Product used for unknown indication
     Dosage: 30 MILLIGRAM, ONCE A DAY, NIGHT
     Route: 048
  5. AZATHIOPRINE [Suspect]
     Active Substance: AZATHIOPRINE
     Indication: Colitis
     Dosage: 75 MILLIGRAM, ONCE A DAY, MORNING, LUNCH AND TEA TIME
     Route: 048
  6. AZATHIOPRINE [Suspect]
     Active Substance: AZATHIOPRINE
     Dosage: 25 MILLIGRAM, ONCE A DAY, MORNING, LUNCH AND TEA TIME
     Route: 048
  7. AZATHIOPRINE [Suspect]
     Active Substance: AZATHIOPRINE
     Dosage: 25 MILLIGRAM, 3 TIMES A DAY (DAILY MORNING, LUNCH AND TEA TIME )
     Route: 065
  8. AZATHIOPRINE [Suspect]
     Active Substance: AZATHIOPRINE
     Dosage: 75 MILLIGRAM, 3 TIMES A DAY (Q8H WITH OR JUST AFTER FOOD )
     Route: 065
  9. DIHYDROCODEINE [Suspect]
     Active Substance: DIHYDROCODEINE
     Indication: Pain
     Dosage: 60 MILLIGRAM, FOUR TIMES DAILY (60 MG, Q6H TWO TO BE TAKEN FOUR TIMES A DAY IF REQUIRED. )
     Route: 048
  10. DIHYDROCODEINE [Suspect]
     Active Substance: DIHYDROCODEINE
     Dosage: 2 DOSAGE FORM, FOUR TIMES/DAY (2 DF, Q6H, AS NECESSARY, TWO TO BE TAKEN 4 TIMES/DAY IF REQUIRED )
     Route: 048
  11. DIHYDROCODEINE [Suspect]
     Active Substance: DIHYDROCODEINE
     Dosage: 240 MILLIGRAM, FOUR TIMES/DAY
     Route: 048
  12. DIHYDROCODEINE [Suspect]
     Active Substance: DIHYDROCODEINE
     Dosage: 8 DOSAGE FORM, ONCE A DAY (TWO TO BE TAKEN FOUR TIMES A DAY IF REQUIRED, AS NECESSARY)
     Route: 048
  13. DIHYDROCODEINE [Suspect]
     Active Substance: DIHYDROCODEINE
     Dosage: 240 MILLIGRAM, ONCE A DAY (60 MILLIGRAM, QID (FOUR TIMES DAILY.WITH OR JUST AFTER FOOD/MEAL)
     Route: 048
  14. DIHYDROCODEINE [Suspect]
     Active Substance: DIHYDROCODEINE
     Dosage: 60 MILLIGRAM, ONCE A DAY (FOUR TIMES DAILY, WITH OR JUST AFTER FOOD/MEAL  )
     Route: 048
  15. DIHYDROCODEINE [Suspect]
     Active Substance: DIHYDROCODEINE
     Dosage: 960 MILLIGRAM, ONCE A DAY (240 MILLIGRAM, QID  (FOUR TIMES DAILY. WITH OR JUST AFTER FOOD/MEAL)
     Route: 048
  16. FERROUS FUMARATE [Suspect]
     Active Substance: FERROUS FUMARATE
     Indication: Anaemia
     Dosage: 420 MILLIGRAM, ONCE A DAY(210 MG, Q12H, MORNING AND NIGHT)
     Route: 048
  17. FERROUS FUMARATE [Suspect]
     Active Substance: FERROUS FUMARATE
     Dosage: 210 MILLIGRAM, ONCE A DAY, MORNING AND NIGHT
     Route: 048
  18. FERROUS FUMARATE [Suspect]
     Active Substance: FERROUS FUMARATE
     Dosage: 840 MILLIGRAM, ONCE A DAY (420 MILLIGRAM, DAILY,MORNING AND NIGHT)
     Route: 048
  19. FOLIC ACID [Suspect]
     Active Substance: FOLIC ACID
     Indication: Folate deficiency
     Dosage: 5 MILLIGRAM, ONCE A DAY, MORNING
     Route: 048
  20. PROMETHAZINE HYDROCHLORIDE [Suspect]
     Active Substance: PROMETHAZINE HYDROCHLORIDE
     Indication: Product used for unknown indication
     Dosage: 25 MILLIGRAM, ONCE A DAY, AT NIGHT
     Route: 048
  21. IRON [Suspect]
     Active Substance: IRON
     Indication: Anaemia
     Dosage: 420 MILLIGRAM, ONCE A DAY((210 MG, BID) )
     Route: 048

REACTIONS (3)
  - Seizure [Unknown]
  - Autoscopy [Unknown]
  - Overdose [Unknown]
